FAERS Safety Report 14523516 (Version 4)
Quarter: 2018Q2

REPORT INFORMATION
  Report Type: Spontaneous
  Country: US (occurrence: US)
  Receive Date: 20180212
  Receipt Date: 20180427
  Transmission Date: 20180711
  Serious: Yes (Hospitalization, Disabling, Other)
  Sender: FDA-Public Use
  Company Number: US-BIOMARINAP-US-2018-116996

PATIENT
  Age: 13 Year
  Sex: Female
  Weight: 34.1 kg

DRUGS (1)
  1. VIMIZIM [Suspect]
     Active Substance: ELOSULFASE ALFA
     Indication: MUCOPOLYSACCHARIDOSIS IV
     Dosage: 65 MG, QW
     Route: 042
     Dates: start: 20131021

REACTIONS (13)
  - Clonus [Unknown]
  - Muscular weakness [Recovering/Resolving]
  - Somatosensory evoked potentials abnormal [Recovering/Resolving]
  - Urinary incontinence [Recovering/Resolving]
  - Spinal cord compression [Recovering/Resolving]
  - Paraplegia [Recovering/Resolving]
  - Gait inability [Unknown]
  - Back pain [Recovering/Resolving]
  - Paraparesis [Unknown]
  - Pain in extremity [Unknown]
  - Hyperreflexia [Unknown]
  - Paraesthesia [Recovering/Resolving]
  - Gait disturbance [Recovering/Resolving]

NARRATIVE: CASE EVENT DATE: 20180123
